FAERS Safety Report 20736697 (Version 1)
Quarter: 2022Q2

REPORT INFORMATION
  Report Type: Spontaneous
  Country: US (occurrence: US)
  Receive Date: 20220421
  Receipt Date: 20220421
  Transmission Date: 20220721
  Serious: No
  Sender: FDA-Public Use
  Company Number: US-Kiniksa Pharmaceuticals Ltd.-2021KPU000388

PATIENT
  Sex: Male

DRUGS (1)
  1. ARCALYST [Suspect]
     Active Substance: RILONACEPT
     Indication: Pericarditis
     Route: 058
     Dates: start: 20210513, end: 202106

REACTIONS (5)
  - Arthralgia [None]
  - Myalgia [None]
  - Swelling [None]
  - Eating disorder [None]
  - Insomnia [None]
